FAERS Safety Report 9264819 (Version 1)
Quarter: 2013Q2

REPORT INFORMATION
  Report Type: Spontaneous
  Country: US (occurrence: US)
  Receive Date: 20130501
  Receipt Date: 20130501
  Transmission Date: 20140414
  Serious: Yes (Other)
  Sender: FDA-Public Use
  Company Number: US-BAYER-2013-052291

PATIENT
  Age: 42 Year
  Sex: Female
  Weight: 69.39 kg

DRUGS (8)
  1. MIRENA [Suspect]
     Indication: CONTRACEPTION
     Dosage: 20 MCG/24HR, CONT
     Route: 015
     Dates: start: 20121221, end: 20130405
  2. CELEBREX [Concomitant]
     Dosage: 100 MG, UNK
     Route: 048
  3. CYPRODINE [Concomitant]
     Route: 048
  4. KLONOPIN [Concomitant]
     Dosage: 0.5 MG, BID
     Route: 048
  5. LYRICA [Concomitant]
     Dosage: 75 MG, BID
     Route: 048
  6. NORTRIPTYLINE [Concomitant]
     Dosage: 10 MG, QID
     Route: 048
  7. VALTREX [Concomitant]
     Indication: GENITAL HERPES
     Dosage: 1 G, BID
     Route: 048
     Dates: start: 20121129
  8. ZOVIRAX [ACICLOVIR] [Concomitant]
     Dosage: 5 UNK, UNK
     Route: 061

REACTIONS (8)
  - Vaginal haemorrhage [Recovering/Resolving]
  - Pelvic pain [Recovering/Resolving]
  - Muscle spasms [None]
  - Headache [None]
  - Anxiety [None]
  - Fatigue [None]
  - Emotional distress [None]
  - Medical device discomfort [None]
